FAERS Safety Report 4972821-8 (Version None)
Quarter: 2006Q2

REPORT INFORMATION
  Report Type: 
  Country: None (occurrence: None)
  Receive Date: 20060414
  Receipt Date: 20060405
  Transmission Date: 20061013
  Serious: Yes (Hospitalization, Other)
  Sender: FDA-Public Use
  Company Number: FR-JNJFOC-20060402500

PATIENT
  Age: 35 Year
  Sex: Male

DRUGS (2)
  1. CONTRAMAL [Suspect]
     Indication: BACK PAIN
     Route: 065
  2. BROMAZEPAM [Suspect]
     Indication: STRESS AT WORK
     Route: 048

REACTIONS (7)
  - AMNESIA [None]
  - DISTURBANCE IN ATTENTION [None]
  - FACIAL PALSY [None]
  - HEADACHE [None]
  - HYPERHIDROSIS [None]
  - ROAD TRAFFIC ACCIDENT [None]
  - VERTIGO [None]
